FAERS Safety Report 21191593 (Version 1)
Quarter: 2022Q3

REPORT INFORMATION
  Report Type: Spontaneous
  Country: US (occurrence: US)
  Receive Date: 20220809
  Receipt Date: 20220809
  Transmission Date: 20221026
  Serious: Yes (Other)
  Sender: FDA-Public Use
  Company Number: US-NOVARTISPH-NVSC2022US178692

PATIENT
  Age: 72 Year
  Sex: Female

DRUGS (2)
  1. ALPRAZOLAM [Suspect]
     Active Substance: ALPRAZOLAM
     Indication: Anxiety
     Dosage: 1 MG, BID
     Route: 065
  2. ALPRAZOLAM [Suspect]
     Active Substance: ALPRAZOLAM
     Indication: Bipolar disorder

REACTIONS (4)
  - Confusional state [Recovering/Resolving]
  - Agitation [Recovering/Resolving]
  - Delirium [Recovering/Resolving]
  - Drug withdrawal syndrome [Recovering/Resolving]
